FAERS Safety Report 7287555-7 (Version None)
Quarter: 2011Q1

REPORT INFORMATION
  Report Type: 
  Country: None (occurrence: None)
  Receive Date: 20110208
  Receipt Date: 20110208
  Transmission Date: 20110831
  Serious: Yes (Disabling)
  Sender: FDA-Public Use
  Company Number: None

PATIENT
  Age: 29 Year
  Sex: Female
  Weight: 67.586 kg

DRUGS (1)
  1. MIRENA [Suspect]
     Dates: start: 20091111, end: 20100329

REACTIONS (8)
  - OLIGOMENORRHOEA [None]
  - ACNE CYSTIC [None]
  - HEADACHE [None]
  - BACK PAIN [None]
  - IRRITABILITY [None]
  - REFUSAL OF TREATMENT BY PATIENT [None]
  - PAIN IN EXTREMITY [None]
  - MENSTRUAL DISORDER [None]
